FAERS Safety Report 5431225-4 (Version None)
Quarter: 2007Q3

REPORT INFORMATION
  Report Type: 
  Country: None (occurrence: None)
  Receive Date: 20070830
  Receipt Date: 20070810
  Transmission Date: 20080115
  Serious: Yes (Hospitalization)
  Sender: FDA-Public Use
  Company Number: KR-ELI_LILLY_AND_COMPANY-KR200708002163

PATIENT
  Age: 70 Year
  Sex: Male
  Weight: 41.5 kg

DRUGS (8)
  1. PEMETREXED [Suspect]
     Indication: NON-SMALL CELL LUNG CANCER
     Dosage: D1 EVERY 3 WEEKS
     Route: 042
     Dates: start: 20070803
  2. FOLIC ACID [Concomitant]
     Indication: PROPHYLAXIS
     Dosage: 1 MG, UNK
     Route: 048
     Dates: start: 20070726
  3. VITAMIN B-12 [Concomitant]
     Indication: PROPHYLAXIS
     Dosage: 1 MG, UNK
     Route: 030
     Dates: start: 20070726, end: 20070726
  4. DEXAMETHASONE 0.5MG TAB [Concomitant]
     Dosage: 4 MG, UNK
     Route: 048
     Dates: start: 20070801, end: 20070804
  5. ITOPRIDE [Concomitant]
  6. OXYCODONE HCL [Concomitant]
     Indication: ANALGESIA
     Dates: start: 20070802
  7. DUROGESIC [Concomitant]
     Indication: ANALGESIA
     Dates: start: 20070804
  8. ALMAGATE [Concomitant]

REACTIONS (2)
  - ANOREXIA [None]
  - LOSS OF CONSCIOUSNESS [None]
